FAERS Safety Report 22585371 (Version 8)
Quarter: 2023Q4

REPORT INFORMATION
  Report Type: Spontaneous
  Country: IQ (occurrence: IQ)
  Receive Date: 20230610
  Receipt Date: 20231113
  Transmission Date: 20240109
  Serious: Yes (Hospitalization, Disabling)
  Sender: FDA-Public Use
  Company Number: IQ-BIOGEN-2023BI01209149

PATIENT
  Age: 29 Year
  Sex: Male

DRUGS (1)
  1. TYSABRI [Suspect]
     Active Substance: NATALIZUMAB
     Indication: Relapsing-remitting multiple sclerosis
     Dosage: NUMBER OF ADMINISTERED DOSES: 30
     Route: 050
     Dates: start: 20200314, end: 20230502

REACTIONS (3)
  - Brain stem syndrome [Recovered/Resolved with Sequelae]
  - Myelitis transverse [Recovered/Resolved with Sequelae]
  - Progressive multifocal leukoencephalopathy [Recovered/Resolved with Sequelae]

NARRATIVE: CASE EVENT DATE: 20230504
